APPROVED DRUG PRODUCT: DIFLUCAN
Active Ingredient: FLUCONAZOLE
Strength: 50MG
Dosage Form/Route: TABLET;ORAL
Application: N019949 | Product #001 | TE Code: AB
Applicant: PFIZER CENTRAL RESEARCH
Approved: Jan 29, 1990 | RLD: Yes | RS: No | Type: RX